FAERS Safety Report 24288138 (Version 2)
Quarter: 2024Q4

REPORT INFORMATION
  Report Type: Spontaneous
  Country: US (occurrence: US)
  Receive Date: 20240905
  Receipt Date: 20241002
  Transmission Date: 20250114
  Serious: No
  Sender: NEUROCRINE BIOSCIENCES
  Company Number: US-NEUROCRINE BIOSCIENCES INC.-2024NBI08504

PATIENT
  Age: 27 Year
  Sex: Female

DRUGS (6)
  1. INGREZZA [Suspect]
     Active Substance: VALBENAZINE
     Indication: Tardive dyskinesia
     Dosage: 40 MILLIGRAM
     Route: 048
     Dates: start: 20240823, end: 20240920
  2. INGREZZA [Suspect]
     Active Substance: VALBENAZINE
     Dosage: 80 MILLIGRAM
     Route: 065
     Dates: start: 20230421
  3. INGREZZA [Suspect]
     Active Substance: VALBENAZINE
     Dosage: 40 MILLIGRAM
     Route: 048
     Dates: start: 20230414, end: 20230420
  4. TRILEPTAL [Concomitant]
     Active Substance: OXCARBAZEPINE
     Indication: Mood swings
     Dosage: 600 MILLIGRAM, BID
     Route: 048
     Dates: start: 20110203
  5. MELATONIN [Concomitant]
     Active Substance: MELATONIN
     Indication: Insomnia
     Dosage: 3 MILLIGRAM, QHS
     Route: 048
     Dates: start: 20110203
  6. GUANFACINE [Concomitant]
     Active Substance: GUANFACINE
     Indication: Psychomotor hyperactivity
     Dosage: 0.5MG IN AM, 1 MG AT NOON AND EVENING
     Route: 048
     Dates: start: 20220421

REACTIONS (5)
  - Agitation [Unknown]
  - Contusion [Unknown]
  - Anxiety [Unknown]
  - Balance disorder [Recovered/Resolved]
  - Fall [Recovered/Resolved]

NARRATIVE: CASE EVENT DATE: 20240701
